FAERS Safety Report 6860780-2 (Version None)
Quarter: 2010Q3

REPORT INFORMATION
  Report Type: 
  Country: None (occurrence: None)
  Receive Date: 20100715
  Receipt Date: 20100706
  Transmission Date: 20110219
  Serious: Yes (Life-Threatening, Hospitalization, Disabling)
  Sender: FDA-Public Use
  Company Number: SP01779

PATIENT
  Age: 63 Year
  Sex: Female

DRUGS (14)
  1. OSMOPREP [Suspect]
     Indication: COLONOSCOPY
     Dosage: ORAL
     Route: 048
     Dates: start: 20080107, end: 20080107
  2. LOPRESSOR [Concomitant]
  3. METHOTREXATE [Concomitant]
  4. ENBREL [Concomitant]
  5. CALCITRATE [Concomitant]
  6. PREDNISONE [Concomitant]
  7. LIPITOR [Concomitant]
  8. FOSAMAX [Concomitant]
  9. ZOLOFT [Concomitant]
  10. DETROL [Concomitant]
  11. ASPIRIN [Concomitant]
  12. FOLIC ACID [Concomitant]
  13. VITAMIN D [Concomitant]
  14. MULTI-VITAMIN [Concomitant]

REACTIONS (18)
  - ABDOMINAL PAIN [None]
  - ABNORMAL FAECES [None]
  - ACUTE PHOSPHATE NEPHROPATHY [None]
  - CHEST DISCOMFORT [None]
  - DECREASED APPETITE [None]
  - DYSPNOEA EXERTIONAL [None]
  - EOSINOPHILIA [None]
  - FLUID OVERLOAD [None]
  - HAEMATOCRIT DECREASED [None]
  - HAEMODIALYSIS [None]
  - HYPERPHOSPHATAEMIA [None]
  - NAUSEA [None]
  - NEPHROCALCINOSIS [None]
  - PERIRENAL HAEMATOMA [None]
  - PYREXIA [None]
  - RENAL FAILURE ACUTE [None]
  - SWELLING FACE [None]
  - THROMBOCYTOPENIA [None]
